FAERS Safety Report 6258802-5 (Version None)
Quarter: 2009Q3

REPORT INFORMATION
  Report Type: 
  Country: None (occurrence: None)
  Receive Date: 20090707
  Receipt Date: 20090701
  Transmission Date: 20100115
  Serious: No
  Sender: FDA-Public Use
  Company Number: US-B.I. PHARMACEUTICALS,INC./RIDGEFIELD-2009-BP-07987BP

PATIENT
  Age: 66 Year
  Sex: Male

DRUGS (3)
  1. SPIRIVA [Suspect]
     Indication: CHRONIC OBSTRUCTIVE PULMONARY DISEASE
     Dosage: 18 MCG
     Route: 055
  2. METHADONE [Concomitant]
     Indication: FIBROMYALGIA
  3. PREVACID [Concomitant]
     Indication: DYSPEPSIA

REACTIONS (2)
  - ERECTILE DYSFUNCTION [None]
  - FIBROMYALGIA [None]
